FAERS Safety Report 20502565 (Version 1)
Quarter: 2022Q1

REPORT INFORMATION
  Report Type: Spontaneous
  Country: CN (occurrence: CN)
  Receive Date: 20220222
  Receipt Date: 20220222
  Transmission Date: 20220423
  Serious: Yes (Other)
  Sender: FDA-Public Use
  Company Number: CN-009507513-2202CHN006155

PATIENT
  Age: 50 Year
  Sex: Female

DRUGS (2)
  1. PEMBROLIZUMAB [Suspect]
     Active Substance: PEMBROLIZUMAB
     Indication: Malignant melanoma
  2. VEMURAFENIB [Concomitant]
     Active Substance: VEMURAFENIB
     Indication: Malignant melanoma

REACTIONS (1)
  - Immune-mediated hepatic disorder [Recovered/Resolved]
